FAERS Safety Report 6240644-8 (Version None)
Quarter: 2009Q2

REPORT INFORMATION
  Report Type: 
  Country: None (occurrence: None)
  Receive Date: 20090623
  Receipt Date: 20081124
  Transmission Date: 20091009
  Serious: No
  Sender: FDA-Public Use
  Company Number: US-ASTRAZENECA-2008UW26285

PATIENT
  Age: 81 Year
  Sex: Female
  Weight: 66.7 kg

DRUGS (1)
  1. PULMICORT FLEXHALER [Suspect]
     Indication: ASTHMA
     Route: 055

REACTIONS (3)
  - COUGH [None]
  - DRY THROAT [None]
  - ILL-DEFINED DISORDER [None]
